FAERS Safety Report 10158606 (Version 1)
Quarter: 2014Q2

REPORT INFORMATION
  Report Type: Spontaneous
  Country: US (occurrence: US)
  Receive Date: 20140508
  Receipt Date: 20140508
  Transmission Date: 20141212
  Serious: Yes (Hospitalization, Other)
  Sender: FDA-Public Use
  Company Number: US-ROCHE-1395793

PATIENT
  Age: 72 Year
  Sex: Male

DRUGS (3)
  1. AVASTIN [Suspect]
     Indication: COLON CANCER STAGE IV
     Route: 065
  2. AVASTIN [Suspect]
     Indication: METASTASES TO LIVER
     Route: 065
     Dates: start: 20140502
  3. AVASTIN [Suspect]
     Indication: METASTASES TO LUNG

REACTIONS (11)
  - Blood pressure increased [Recovered/Resolved]
  - Dyspnoea [Recovered/Resolved]
  - Communication disorder [Recovered/Resolved]
  - Eyelid ptosis [Recovered/Resolved]
  - Choking [Recovered/Resolved]
  - Aphasia [Recovered/Resolved]
  - Blindness [Recovered/Resolved]
  - Visual impairment [Not Recovered/Not Resolved]
  - Visual acuity reduced [Not Recovered/Not Resolved]
  - Abdominal pain upper [Not Recovered/Not Resolved]
  - Diarrhoea [Not Recovered/Not Resolved]
